FAERS Safety Report 19072259 (Version 1)
Quarter: 2021Q1

REPORT INFORMATION
  Report Type: Spontaneous
  Country: US (occurrence: US)
  Receive Date: 20210326
  Receipt Date: 20210326
  Transmission Date: 20210420
  Serious: Yes (Hospitalization)
  Sender: FDA-Public Use
  Company Number: None

PATIENT
  Age: 85 Year
  Sex: Male

DRUGS (1)
  1. SULFAMETHOXAZOLE/TRIMETHOPRIM (SULFAMETHOXAZOLE 400MG/TRIMETHOPRIM 80MG TAB) [Suspect]
     Active Substance: SULFAMETHOXAZOLE\TRIMETHOPRIM
     Dates: start: 20210129

REACTIONS (1)
  - Delirium [None]

NARRATIVE: CASE EVENT DATE: 20210129
